FAERS Safety Report 6497436-4 (Version None)
Quarter: 2009Q4

REPORT INFORMATION
  Report Type: 
  Country: None (occurrence: None)
  Receive Date: 20091211
  Receipt Date: 20091106
  Transmission Date: 20100525
  Serious: Yes (Hospitalization)
  Sender: FDA-Public Use
  Company Number: 230215J09BRA

PATIENT
  Age: 33 Year
  Sex: Female

DRUGS (5)
  1. REBIF [Suspect]
     Indication: RELAPSING-REMITTING MULTIPLE SCLEROSIS
     Dosage: 22 MCG, 3 IN 1 WEEKS
     Dates: start: 20060501
  2. ACETAMINOPHEN [Concomitant]
  3. BETASERC (BETAHISTINE HYDROCHLORIDE) [Concomitant]
  4. ENALAPRIL (ENALAPRIL /00574901/) [Concomitant]
  5. PURAN T4 (LEVOTHYROXINE SODIUM) [Concomitant]

REACTIONS (7)
  - ASTHMA [None]
  - COORDINATION ABNORMAL [None]
  - DIZZINESS [None]
  - INJECTION SITE HAEMATOMA [None]
  - MULTIPLE SCLEROSIS RELAPSE [None]
  - NERVOUS SYSTEM DISORDER [None]
  - PNEUMONIA ASPIRATION [None]
